FAERS Safety Report 20308971 (Version 1)
Quarter: 2022Q1

REPORT INFORMATION
  Report Type: Spontaneous
  Country: US (occurrence: None)
  Receive Date: 20220106
  Receipt Date: 20220106
  Transmission Date: 20220423
  Serious: Yes (Disabling)
  Sender: FDA-Public Use
  Company Number: None

PATIENT
  Age: 24 Year
  Sex: Male
  Weight: 94.5 kg

DRUGS (1)
  1. CLINDAMYCIN HYDROCHLORIDE [Suspect]
     Active Substance: CLINDAMYCIN HYDROCHLORIDE
     Indication: Tooth extraction
     Dosage: FREQUENCY : 3 TIMES A DAY;?
     Route: 048
     Dates: start: 20211228, end: 20220104

REACTIONS (8)
  - Depression [None]
  - Fear [None]
  - Anxiety [None]
  - Eating disorder [None]
  - Crying [None]
  - Frequent bowel movements [None]
  - Weight decreased [None]
  - Insomnia [None]

NARRATIVE: CASE EVENT DATE: 20211231
